FAERS Safety Report 13820559 (Version 4)
Quarter: 2018Q2

REPORT INFORMATION
  Report Type: Spontaneous
  Country: US (occurrence: US)
  Receive Date: 20170801
  Receipt Date: 20180608
  Transmission Date: 20180711
  Serious: Yes (Other)
  Sender: FDA-Public Use
  Company Number: US-JNJFOC-20170615038

PATIENT
  Sex: Female

DRUGS (1)
  1. MONONESSA [Suspect]
     Active Substance: ETHINYL ESTRADIOL\NORGESTIMATE
     Indication: CONTRACEPTION
     Dosage: 0.250 MG / 0.035 MG
     Route: 065
     Dates: start: 20170604, end: 20170618

REACTIONS (2)
  - Exposure during pregnancy [Unknown]
  - Pregnancy on oral contraceptive [Unknown]
